FAERS Safety Report 5137839-3 (Version None)
Quarter: 2006Q4

REPORT INFORMATION
  Report Type: 
  Country: None (occurrence: None)
  Receive Date: 20061030
  Receipt Date: 20060123
  Transmission Date: 20070319
  Serious: No
  Sender: FDA-Public Use
  Company Number: US-GLAXOSMITHKLINE-A0590516A

PATIENT
  Age: 76 Year
  Sex: Male

DRUGS (10)
  1. ADVAIR HFA [Suspect]
     Indication: CHRONIC OBSTRUCTIVE PULMONARY DISEASE
     Dosage: 1PUFF TWICE PER DAY
     Route: 055
  2. ALBUTEROL [Concomitant]
  3. DUONEB [Concomitant]
     Route: 065
  4. ALLOPURINOL [Concomitant]
  5. METOPROLOL TARTRATE [Concomitant]
  6. ASPIRIN [Concomitant]
  7. DEXTROL [Concomitant]
     Route: 065
  8. OXYBUTYN [Concomitant]
     Route: 065
  9. PREDNISONE TAB [Concomitant]
  10. PAROXETINE HCL [Concomitant]
     Route: 048

REACTIONS (3)
  - DRUG INEFFECTIVE [None]
  - DYSPNOEA [None]
  - PHARMACEUTICAL PRODUCT COMPLAINT [None]
